FAERS Safety Report 19394379 (Version 1)
Quarter: 2021Q2

REPORT INFORMATION
  Report Type: Report from Study
  Country: GB (occurrence: GB)
  Receive Date: 20210609
  Receipt Date: 20210609
  Transmission Date: 20210717
  Serious: Yes (Hospitalization)
  Sender: FDA-Public Use
  Company Number: GB-GW PHARMA-201905GBGW1353

PATIENT

DRUGS (4)
  1. CLOBAZAM. [Concomitant]
     Active Substance: CLOBAZAM
     Indication: PRODUCT USED FOR UNKNOWN INDICATION
     Dosage: 20 MILLIGRAM, QD
     Route: 065
     Dates: start: 201805
  2. EPIDIOLEX [Suspect]
     Active Substance: CANNABIDIOL
     Indication: EPILEPTIC ENCEPHALOPATHY
     Dosage: 10 MG/KG, 100 MILLIGRAM, BID
     Route: 048
     Dates: start: 20190220
  3. PHENOBARBITONE [PHENOBARBITAL] [Suspect]
     Active Substance: PHENOBARBITAL
     Indication: PRODUCT USED FOR UNKNOWN INDICATION
     Dosage: 48 MILLIGRAM, BID
     Route: 065
     Dates: start: 201808
  4. SODIUM VALPROATE [Concomitant]
     Active Substance: VALPROATE SODIUM
     Indication: PRODUCT USED FOR UNKNOWN INDICATION
     Dosage: 400 MILLIGRAM, BID
     Route: 065
     Dates: start: 201805

REACTIONS (4)
  - Generalised tonic-clonic seizure [Unknown]
  - Sedation [Recovering/Resolving]
  - Seizure [Recovered/Resolved]
  - Seizure cluster [Unknown]

NARRATIVE: CASE EVENT DATE: 20190505
